FAERS Safety Report 5362974-4 (Version None)
Quarter: 2007Q2

REPORT INFORMATION
  Report Type: 
  Country: None (occurrence: None)
  Receive Date: 20070615
  Receipt Date: 20070608
  Transmission Date: 20071010
  Serious: Yes (Life-Threatening)
  Sender: FDA-Public Use
  Company Number: 230020M07DEU

PATIENT
  Age: 47 Year
  Sex: Female
  Weight: 80 kg

DRUGS (3)
  1. REBIF [Suspect]
     Indication: MULTIPLE SCLEROSIS
     Dosage: SUBCUTANEOUS
     Route: 058
  2. METOCLOPRAMIDE/00041901/ [Concomitant]
  3. RANITIDINE  /00550801/ [Concomitant]

REACTIONS (1)
  - MYELOID LEUKAEMIA [None]
